FAERS Safety Report 11537669 (Version 1)
Quarter: 2015Q3

REPORT INFORMATION
  Report Type: Spontaneous
  Country: JP (occurrence: JP)
  Receive Date: 20150922
  Receipt Date: 20150922
  Transmission Date: 20151125
  Serious: Yes (Death, Hospitalization, Other)
  Sender: FDA-Public Use
  Company Number: JP-PFIZER INC-2015192845

PATIENT
  Age: 87 Year
  Sex: Female

DRUGS (3)
  1. CEFTRIAXONE. [Concomitant]
     Active Substance: CEFTRIAXONE
     Dosage: 1 G, 1X/DAY
     Route: 041
     Dates: start: 20150529, end: 20150601
  2. CLARITH [Concomitant]
     Active Substance: CLARITHROMYCIN
     Indication: ATYPICAL MYCOBACTERIAL INFECTION
     Dosage: 200 MG, 2X/DAY
     Route: 048
     Dates: start: 20150530, end: 20150602
  3. ZITHROMAC SR [Suspect]
     Active Substance: AZITHROMYCIN DIHYDRATE
     Dosage: 2 G, SINGLE
     Route: 048
     Dates: start: 20150529, end: 20150529

REACTIONS (1)
  - Pneumonia [Fatal]
